FAERS Safety Report 18342260 (Version 2)
Quarter: 2020Q4

REPORT INFORMATION
  Report Type: Other
  Country: US (occurrence: US)
  Receive Date: 20201005
  Receipt Date: 20201019
  Transmission Date: 20210113
  Serious: Yes (Hospitalization)
  Sender: FDA-Public Use
  Company Number: US-ROCHE-2652003

PATIENT
  Age: 83 Year
  Sex: Female
  Weight: 46.31 kg

DRUGS (7)
  1. ACTEMRA [Suspect]
     Active Substance: TOCILIZUMAB
  2. ACTEMRA [Suspect]
     Active Substance: TOCILIZUMAB
  3. ACTEMRA [Suspect]
     Active Substance: TOCILIZUMAB
  4. ACTEMRA [Suspect]
     Active Substance: TOCILIZUMAB
  5. ACTEMRA [Suspect]
     Active Substance: TOCILIZUMAB
     Indication: OSTEOARTHRITIS
     Dosage: ONGOING
     Route: 058
  6. ACTEMRA [Suspect]
     Active Substance: TOCILIZUMAB
     Indication: RHEUMATOID ARTHRITIS
     Dosage: ONGOING: YES. INJECT 162MG SUBCUTANEOUSLY ONCE A WEEK
     Route: 058
     Dates: start: 2016
  7. METHOTREXATE. [Concomitant]
     Active Substance: METHOTREXATE
     Indication: RHEUMATOID ARTHRITIS
     Dosage: 10 OF 2.5MG TABLETS PER DOSE; ONGOING YES
     Route: 048

REACTIONS (4)
  - Fall [Unknown]
  - Product storage error [Unknown]
  - Accident [Unknown]
  - Pain [Unknown]

NARRATIVE: CASE EVENT DATE: 20200726
